FAERS Safety Report 17635729 (Version 1)
Quarter: 2020Q2

REPORT INFORMATION
  Report Type: Report from Study
  Country: US (occurrence: US)
  Receive Date: 20200407
  Receipt Date: 20200407
  Transmission Date: 20200713
  Serious: Yes (Other)
  Sender: FDA-Public Use
  Company Number: US-BAUSCH-BL-2020-010257

PATIENT
  Age: 77 Year
  Sex: Male

DRUGS (8)
  1. LEVOTHYROXINE. [Concomitant]
     Active Substance: LEVOTHYROXINE
     Indication: PRODUCT USED FOR UNKNOWN INDICATION
  2. CLONIDINE. [Concomitant]
     Active Substance: CLONIDINE
     Indication: PRODUCT USED FOR UNKNOWN INDICATION
  3. TRESIBA [Concomitant]
     Active Substance: INSULIN DEGLUDEC
     Indication: PRODUCT USED FOR UNKNOWN INDICATION
  4. CITALOPRAM [Concomitant]
     Active Substance: CITALOPRAM HYDROBROMIDE
     Indication: PRODUCT USED FOR UNKNOWN INDICATION
  5. CARBIDOPA. [Concomitant]
     Active Substance: CARBIDOPA
     Indication: PRODUCT USED FOR UNKNOWN INDICATION
  6. LATANOPROSTENE BUNOD OPHTHALMIC SOLUTION 0.024% [Suspect]
     Active Substance: LATANOPROSTENE BUNOD
     Indication: PRODUCT USED FOR UNKNOWN INDICATION
     Dosage: AT PM IN RIGHT EYE AND IN LEFT EYE
     Route: 047
  7. FUROSEMIDE. [Concomitant]
     Active Substance: FUROSEMIDE
     Indication: PRODUCT USED FOR UNKNOWN INDICATION
  8. HUMALOG [Concomitant]
     Active Substance: INSULIN LISPRO
     Indication: PRODUCT USED FOR UNKNOWN INDICATION

REACTIONS (2)
  - Keratitis [Unknown]
  - Dry eye [Unknown]
